FAERS Safety Report 6554182-6 (Version None)
Quarter: 2010Q1

REPORT INFORMATION
  Report Type: 
  Country: None (occurrence: None)
  Receive Date: 20100122
  Receipt Date: 20100108
  Transmission Date: 20100710
  Serious: Yes (Other)
  Sender: FDA-Public Use
  Company Number: RENA-1000619

PATIENT
  Age: 64 Year
  Sex: Female

DRUGS (1)
  1. RENAGEL [Suspect]
     Indication: HYPERPHOSPHATAEMIA
     Dosage: 4 G, TID, ORAL
     Route: 048
     Dates: start: 19981101

REACTIONS (6)
  - CHOKING [None]
  - CONGENITAL CYSTIC KIDNEY DISEASE [None]
  - INSOMNIA [None]
  - ORAL ADMINISTRATION COMPLICATION [None]
  - PRURITUS [None]
  - RENAL PAIN [None]
